FAERS Safety Report 12920098 (Version 1)
Quarter: 2016Q4

REPORT INFORMATION
  Report Type: Spontaneous
  Country: US (occurrence: US)
  Receive Date: 20161104
  Receipt Date: 20161104
  Transmission Date: 20170207
  Serious: Yes (Hospitalization)
  Sender: FDA-Public Use
  Company Number: None

PATIENT
  Age: 71 Year
  Sex: Male
  Weight: 95.26 kg

DRUGS (5)
  1. MYRBETRIQ [Concomitant]
     Active Substance: MIRABEGRON
  2. MULTIVITAMIN [Concomitant]
     Active Substance: VITAMINS
  3. ALISERTIB [Suspect]
     Active Substance: ALISERTIB
     Indication: GLIOBLASTOMA MULTIFORME
     Dosage: D1-5
     Dates: start: 20161031
  4. TADALAFIL [Concomitant]
     Active Substance: TADALAFIL
  5. KEPPRA [Concomitant]
     Active Substance: LEVETIRACETAM

REACTIONS (3)
  - Head injury [None]
  - Gait disturbance [None]
  - Fall [None]

NARRATIVE: CASE EVENT DATE: 20161101
